FAERS Safety Report 16444937 (Version 5)
Quarter: 2019Q3

REPORT INFORMATION
  Report Type: Spontaneous
  Country: US (occurrence: US)
  Receive Date: 20190618
  Receipt Date: 20190703
  Transmission Date: 20191004
  Serious: Yes (Other)
  Sender: FDA-Public Use
  Company Number: US-PFIZER INC-2019258110

PATIENT
  Sex: Female
  Weight: 2.72 kg

DRUGS (1)
  1. AMIODARONE HCL [Suspect]
     Active Substance: AMIODARONE HYDROCHLORIDE
     Indication: PALPITATIONS
     Dosage: UNK (DOSE INCREASED)
     Route: 064

REACTIONS (3)
  - Congenital hypothyroidism [Recovering/Resolving]
  - Maternal exposure timing unspecified [Recovering/Resolving]
  - Goitre congenital [Recovering/Resolving]
